FAERS Safety Report 11927447 (Version 1)
Quarter: 2016Q1

REPORT INFORMATION
  Report Type: Spontaneous
  Country: US (occurrence: None)
  Receive Date: 20160115
  Receipt Date: 20160115
  Transmission Date: 20160526
  Serious: Yes (Hospitalization, Disabling, Other)
  Sender: FDA-Public Use
  Company Number: None

PATIENT
  Age: 49 Year
  Sex: Female
  Weight: 79.38 kg

DRUGS (6)
  1. METOPROLOL SUCCINATE 50/100 MG DR REDDY LABS [Suspect]
     Active Substance: METOPROLOL SUCCINATE
     Indication: TACHYCARDIA
     Dosage: ONCE DAILY, TAKEN BY MOULTH
     Route: 048
     Dates: start: 20151226, end: 20160105
  2. METOPROLOL SUCCINATE 50/100 MG DR REDDY LABS [Suspect]
     Active Substance: METOPROLOL SUCCINATE
     Indication: VENTRICULAR EXTRASYSTOLES
     Dosage: ONCE DAILY, TAKEN BY MOULTH
     Route: 048
     Dates: start: 20151226, end: 20160105
  3. NORCO [Concomitant]
     Active Substance: ACETAMINOPHEN\HYDROCODONE BITARTRATE
  4. ATIVAN [Concomitant]
     Active Substance: LORAZEPAM
  5. ALIVE MULTIVITAMIN [Concomitant]
  6. OMEGA 3 [Concomitant]
     Active Substance: OMEGA-3 FATTY ACIDS

REACTIONS (9)
  - Ventricular extrasystoles [None]
  - Chest pain [None]
  - Tremor [None]
  - Headache [None]
  - Palpitations [None]
  - Pain in extremity [None]
  - Back pain [None]
  - Fear [None]
  - Product quality issue [None]

NARRATIVE: CASE EVENT DATE: 20151226
